FAERS Safety Report 7404175-1 (Version None)
Quarter: 2011Q2

REPORT INFORMATION
  Report Type: 
  Country: None (occurrence: None)
  Receive Date: 20110408
  Receipt Date: 20110406
  Transmission Date: 20111010
  Serious: Yes (Life-Threatening, Hospitalization, Other)
  Sender: FDA-Public Use
  Company Number: US-B.I. PHARMACEUTICALS,INC./RIDGEFIELD-2011-BP-10200BP

PATIENT
  Age: 77 Year
  Sex: Female

DRUGS (5)
  1. LOPRESSOR [Concomitant]
     Indication: HYPERTENSION
  2. LASIX [Concomitant]
     Indication: CARDIAC FAILURE CONGESTIVE
  3. PRADAXA [Suspect]
     Indication: ATRIAL FIBRILLATION
     Dosage: 300 MG
     Route: 048
     Dates: end: 20110405
  4. SYNTHROID [Concomitant]
     Indication: HYPOTHYROIDISM
  5. CRESTOR [Concomitant]
     Indication: BLOOD CHOLESTEROL INCREASED

REACTIONS (5)
  - INTESTINAL ISCHAEMIA [None]
  - EPISTAXIS [None]
  - INTERNATIONAL NORMALISED RATIO INCREASED [None]
  - RESPIRATORY FAILURE [None]
  - PNEUMONIA [None]
